FAERS Safety Report 9558944 (Version 2)
Quarter: 2013Q4

REPORT INFORMATION
  Report Type: Report from Study
  Country: MX (occurrence: MX)
  Receive Date: 20130927
  Receipt Date: 20131025
  Transmission Date: 20140711
  Serious: Yes (Life-Threatening, Other)
  Sender: FDA-Public Use
  Company Number: MX-009507513-1309MEX011402

PATIENT
  Age: 58 Year
  Sex: Male
  Weight: 65 kg

DRUGS (2)
  1. DEXAMETHASONE [Suspect]
     Indication: PLASMA CELL MYELOMA
     Dosage: 20 MG ON DAY ONE, TWO, FOUR, FIVE, EIGHT, NINE, ELEVEN, TWELVE AND EVERY 21 DAYS
     Route: 048
     Dates: start: 20130716
  2. BORTEZOMIB [Suspect]
     Indication: PLASMA CELL MYELOMA
     Dosage: 0.98MG/M2 ON DAY ONE, FOUR, EIGHT, ELEVEN AND EVERY 21 DAYS
     Route: 058
     Dates: start: 20130716

REACTIONS (1)
  - Thrombocytopenia [Recovered/Resolved]
